FAERS Safety Report 5923766-8 (Version None)
Quarter: 2008Q4

REPORT INFORMATION
  Report Type: 
  Country: None (occurrence: None)
  Receive Date: 20081020
  Receipt Date: 20081009
  Transmission Date: 20090506
  Serious: Yes (Hospitalization)
  Sender: FDA-Public Use
  Company Number: GB-ASTRAZENECA-2008GB01916

PATIENT
  Age: 75 Year
  Sex: Female
  Weight: 75 kg

DRUGS (6)
  1. OMEPRAZOLE [Suspect]
     Indication: DYSPEPSIA
     Route: 048
     Dates: start: 20080902, end: 20080916
  2. AMOXICILLIN [Suspect]
     Route: 048
     Dates: start: 20080902, end: 20080916
  3. CLARITHROMYCIN [Suspect]
     Route: 048
     Dates: start: 20080902, end: 20080916
  4. SIMVASTATIN [Suspect]
     Indication: HYPERLIPIDAEMIA
     Dosage: 40 MG
     Route: 048
     Dates: end: 20080909
  5. ASPIRIN [Concomitant]
     Indication: CARDIOVASCULAR EVENT PROPHYLAXIS
     Route: 048
  6. QUININE [Concomitant]
     Indication: MUSCLE SPASMS
     Route: 048
     Dates: end: 20080909

REACTIONS (1)
  - RHABDOMYOLYSIS [None]
